FAERS Safety Report 15230327 (Version 2)
Quarter: 2018Q3

REPORT INFORMATION
  Report Type: Spontaneous
  Country: IL (occurrence: IL)
  Receive Date: 20180802
  Receipt Date: 20180820
  Transmission Date: 20181010
  Serious: Yes (Other)
  Sender: FDA-Public Use
  Company Number: IL-EMD SERONO-9037784

PATIENT
  Age: 40 Year
  Sex: Female
  Weight: 58 kg

DRUGS (2)
  1. OVITRELLE [Suspect]
     Active Substance: CHORIOGONADOTROPIN ALFA
     Indication: INFERTILITY
     Dosage: START DATE OF THERAPY: 30 JUL 2018
     Route: 058
     Dates: end: 20180730
  2. GONAL?F [Suspect]
     Active Substance: FOLLITROPIN
     Indication: INFERTILITY
     Route: 058
     Dates: start: 20180723, end: 20180728

REACTIONS (13)
  - Feeling abnormal [Recovered/Resolved]
  - Angina pectoris [Recovered/Resolved]
  - Mood altered [Recovered/Resolved]
  - Burning sensation [Recovered/Resolved]
  - Body temperature decreased [Recovered/Resolved]
  - Dyspnoea [Recovered/Resolved]
  - Arthralgia [Recovered/Resolved]
  - Cold sweat [Recovered/Resolved]
  - Chest discomfort [Recovered/Resolved]
  - Insomnia [Unknown]
  - Bedridden [Recovered/Resolved]
  - Vaginal haemorrhage [Not Recovered/Not Resolved]
  - Myalgia [Recovered/Resolved]

NARRATIVE: CASE EVENT DATE: 201807
